FAERS Safety Report 4837569-9 (Version None)
Quarter: 2005Q4

REPORT INFORMATION
  Report Type: 
  Country: None (occurrence: None)
  Receive Date: 20051024
  Receipt Date: 20050811
  Transmission Date: 20060501
  Serious: Yes (Other)
  Sender: FDA-Public Use
  Company Number: 2005114659

PATIENT
  Age: 54 Year
  Sex: Female
  Weight: 63.5036 kg

DRUGS (6)
  1. RELPAX [Suspect]
     Indication: MIGRAINE
     Dosage: (1 IN 1 AS NECESSARY)
     Dates: start: 20050601
  2. PREDNISONE [Concomitant]
  3. IMURAN [Concomitant]
  4. PLAQUENIL [Concomitant]
  5. PREMARIN [Concomitant]
  6. DILTIAZEM [Concomitant]

REACTIONS (1)
  - MIGRAINE [None]
